FAERS Safety Report 11687933 (Version 1)
Quarter: 2015Q4

REPORT INFORMATION
  Report Type: Spontaneous
  Country: US (occurrence: US)
  Receive Date: 20151030
  Receipt Date: 20151030
  Transmission Date: 20160304
  Serious: Yes (Death, Hospitalization, Other)
  Sender: FDA-Public Use
  Company Number: US-PFIZER INC-2015354167

PATIENT
  Age: 62 Year
  Sex: Female
  Weight: 52 kg

DRUGS (22)
  1. ENBREL [Suspect]
     Active Substance: ETANERCEPT
     Indication: RHEUMATOID ARTHRITIS
     Dosage: 25 MG, 2 TIMES/WK
     Route: 058
  2. XELJANZ [Suspect]
     Active Substance: TOFACITINIB CITRATE
     Dosage: UNK
     Route: 065
     Dates: start: 201409
  3. METHOTREXATE SODIUM. [Suspect]
     Active Substance: METHOTREXATE SODIUM
     Dosage: UNK
     Route: 065
  4. LEFLUNOMIDE. [Suspect]
     Active Substance: LEFLUNOMIDE
     Dosage: UNK
     Route: 065
  5. HUMIRA [Suspect]
     Active Substance: ADALIMUMAB
     Dosage: UNK
     Route: 065
  6. ACETAMINOPHEN W/HYDROCODONE [Concomitant]
     Active Substance: ACETAMINOPHEN\HYDROCODONE
     Dosage: UNK,5-325 MG
     Route: 048
     Dates: start: 20130114
  7. CYCLOBENZAPRINE HCL [Concomitant]
     Active Substance: CYCLOBENZAPRINE HYDROCHLORIDE
     Dosage: 10 MG, UNK
     Route: 048
     Dates: start: 20130418
  8. ENBREL [Suspect]
     Active Substance: ETANERCEPT
     Dosage: 25 MG, 2X/WEEK
     Route: 058
     Dates: start: 201504
  9. EXCEDRIN EXTRA STRENGTH [Concomitant]
     Active Substance: ACETAMINOPHEN\ASPIRIN\CAFFEINE
     Dosage: UNK
     Dates: start: 20120822
  10. PREDNISONE. [Concomitant]
     Active Substance: PREDNISONE
     Dosage: 5 MG, UNK
     Route: 048
     Dates: start: 20130114
  11. IMITREX [Concomitant]
     Active Substance: SUMATRIPTAN\SUMATRIPTAN SUCCINATE
     Indication: HEADACHE
     Dosage: 100 MG, UNK
     Dates: start: 20140428
  12. ORENCIA [Concomitant]
     Active Substance: ABATACEPT
     Dosage: UNK
     Dates: start: 201208, end: 201211
  13. HYDROXYCHLOROQUINE [Suspect]
     Active Substance: HYDROXYCHLOROQUINE
     Dosage: UNK
     Route: 065
  14. REMICADE [Suspect]
     Active Substance: INFLIXIMAB
     Dosage: UNK
     Route: 065
  15. ENBREL [Suspect]
     Active Substance: ETANERCEPT
     Dosage: UNK
     Dates: start: 2011, end: 201208
  16. SULFASALAZINE. [Suspect]
     Active Substance: SULFASALAZINE
     Dosage: UNK
     Route: 065
  17. ACTEMRA [Suspect]
     Active Substance: TOCILIZUMAB
     Dosage: UNK
     Route: 065
  18. GOLD [Suspect]
     Active Substance: GOLD
     Dosage: UNK
     Route: 065
  19. ENBREL [Suspect]
     Active Substance: ETANERCEPT
     Dosage: 25 MG, 2X/WEEK
     Route: 058
     Dates: start: 201211, end: 201409
  20. TUMS EX [Concomitant]
     Active Substance: CALCIUM CARBONATE
     Dosage: 750 MG, QD
     Route: 048
  21. PRILOSEC [Concomitant]
     Active Substance: OMEPRAZOLE MAGNESIUM
     Dosage: 20 MG, UNK
     Route: 048
     Dates: start: 20150317
  22. COLCRYS [Concomitant]
     Active Substance: COLCHICINE
     Dosage: 0.6 MG, UNK
     Dates: start: 20150313

REACTIONS (17)
  - Eye disorder [Unknown]
  - Migraine [Unknown]
  - Abdominal pain [Unknown]
  - Intestinal obstruction [Fatal]
  - Procedural haemorrhage [Fatal]
  - Adenocarcinoma of colon [Unknown]
  - Drug ineffective [Unknown]
  - Osteomyelitis [Unknown]
  - Diverticulum intestinal [Unknown]
  - Malignant bowel obstruction [Unknown]
  - Intestinal ischaemia [Unknown]
  - Large intestine perforation [Unknown]
  - Infection [Fatal]
  - Lymphadenitis [Unknown]
  - Headache [Unknown]
  - Vascular access complication [Unknown]
  - Injection site rash [Unknown]

NARRATIVE: CASE EVENT DATE: 2015
